FAERS Safety Report 4680647-8 (Version None)
Quarter: 2005Q2

REPORT INFORMATION
  Report Type: 
  Country: None (occurrence: None)
  Receive Date: 20050531
  Receipt Date: 20050425
  Transmission Date: 20051028
  Serious: No
  Sender: FDA-Public Use
  Company Number: WAES 0504USA04435

PATIENT
  Age: 68 Year
  Sex: Female

DRUGS (3)
  1. ZETIA [Suspect]
     Indication: BLOOD CHOLESTEROL INCREASED
     Dosage: 10 MG/DAILY/PO
     Route: 048
     Dates: start: 20050420
  2. HYZAAR [Concomitant]
  3. ATENOLOL [Concomitant]

REACTIONS (2)
  - INSOMNIA [None]
  - PRURITUS [None]
